FAERS Safety Report 9579236 (Version 2)
Quarter: 2013Q4

REPORT INFORMATION
  Report Type: Spontaneous
  Country: US (occurrence: US)
  Receive Date: 20131001
  Receipt Date: 20131001
  Transmission Date: 20140711
  Serious: No
  Sender: FDA-Public Use
  Company Number: US-AMGEN-USASP2013001548

PATIENT
  Age: 53 Year
  Sex: Female
  Weight: 73.47 kg

DRUGS (12)
  1. ENBREL [Suspect]
     Indication: RHEUMATOID ARTHRITIS
     Dosage: 50 MG, QWK
     Route: 058
     Dates: end: 20130124
  2. CENTRUM                            /02217401/ [Concomitant]
     Dosage: UNK
  3. CALTRATE                           /00944201/ [Concomitant]
     Dosage: 600 UNK, UNK
  4. METHOTREXATE [Concomitant]
     Dosage: 2.5 MG, UNK
  5. PREDNISONE [Concomitant]
     Dosage: 5 MG, UNK
  6. FOLIC ACID [Concomitant]
     Dosage: 1 MG, UNK
  7. FISH OIL [Concomitant]
     Dosage: UNK
  8. VITAMIN D                          /00107901/ [Concomitant]
     Dosage: 1000 IU, UNK
  9. VITAMIN C                          /00008001/ [Concomitant]
     Dosage: 500 MG, UNK
  10. WELCHOL [Concomitant]
     Dosage: 625 MG, UNK
  11. TYLENOL 8 HOUR [Concomitant]
     Dosage: 650 MG, UNK
  12. VITAMIN B12                        /00056201/ [Concomitant]
     Dosage: 1000 MUG, UNK

REACTIONS (3)
  - Drug ineffective [Unknown]
  - Staphylococcal infection [Unknown]
  - Sinus congestion [Unknown]
